FAERS Safety Report 9248619 (Version 1)
Quarter: 2013Q1

REPORT INFORMATION
  Report Type: Spontaneous
  Country: US (occurrence: None)
  Receive Date: 20130305
  Receipt Date: 20130305
  Transmission Date: 20140127
  Serious: Yes (Other)
  Sender: FDA-Public Use
  Company Number: 163-21880-12091671 (0)

PATIENT
  Age: 82 Year
  Sex: Female

DRUGS (4)
  1. REVLIMID (LENALIDOMIDE) [Suspect]
     Indication: PLASMA CELL MYELOMA
     Route: 048
     Dates: start: 20110328
  2. OXYCODONE HCL (OXYCODONE HYDROCHLORIDE) [Concomitant]
  3. VITAMIN E (TOCOPHEROL) [Concomitant]
  4. DEXAMETHASONE (DEXAMETHASONE) [Concomitant]

REACTIONS (1)
  - Pruritus [None]
